FAERS Safety Report 8277084-6 (Version None)
Quarter: 2012Q2

REPORT INFORMATION
  Report Type: 
  Country: None (occurrence: None)
  Receive Date: 20120412
  Receipt Date: 20120409
  Transmission Date: 20120825
  Serious: Yes (Other)
  Sender: FDA-Public Use
  Company Number: PHHY2012BR030755

PATIENT
  Age: 89 Year
  Sex: Female

DRUGS (2)
  1. DIOVAN [Suspect]
     Indication: HYPERTENSION
     Dosage: 2 TABLETS (80 MG) DAILY
  2. DIOVAN [Suspect]
     Dosage: 1 TABLET (160 MG) A DAY

REACTIONS (2)
  - URINARY TRACT INFECTION [None]
  - DEMENTIA ALZHEIMER'S TYPE [None]
